FAERS Safety Report 5968745-X (Version None)
Quarter: 2008Q4

REPORT INFORMATION
  Report Type: 
  Country: None (occurrence: None)
  Receive Date: 20081121
  Receipt Date: 20081121
  Transmission Date: 20090506
  Serious: Yes (Other)
  Sender: FDA-Public Use
  Company Number: None

PATIENT
  Age: 72 Year
  Sex: Male
  Weight: 87.5442 kg

DRUGS (1)
  1. GABAPENTIN 300 M TABLETS UNKNOWN [Suspect]
     Indication: NEUROPATHY PERIPHERAL
     Dosage: 1,800 M DAILY PO
     Route: 048
     Dates: start: 20080712, end: 20081119

REACTIONS (1)
  - EJACULATION FAILURE [None]
